FAERS Safety Report 15580269 (Version 2)
Quarter: 2018Q4

REPORT INFORMATION
  Report Type: Spontaneous
  Country: TW (occurrence: TW)
  Receive Date: 20181102
  Receipt Date: 20181109
  Transmission Date: 20190205
  Serious: Yes (Hospitalization, Other)
  Sender: FDA-Public Use
  Company Number: TW-PFIZER INC-2018440623

PATIENT
  Age: 54 Year
  Sex: Female

DRUGS (4)
  1. EPIRUBICIN HCL [Suspect]
     Active Substance: EPIRUBICIN HYDROCHLORIDE
     Indication: FOLLICULAR DENDRITIC CELL SARCOMA
     Dosage: UNK
  2. IFOSFAMIDE. [Suspect]
     Active Substance: IFOSFAMIDE
     Indication: FOLLICULAR DENDRITIC CELL SARCOMA
     Dosage: UNK
  3. DACARBAZINE. [Suspect]
     Active Substance: DACARBAZINE
     Indication: FOLLICULAR DENDRITIC CELL SARCOMA
     Dosage: UNK
  4. CISPLATIN. [Suspect]
     Active Substance: CISPLATIN
     Indication: FOLLICULAR DENDRITIC CELL SARCOMA
     Dosage: UNK

REACTIONS (1)
  - Tumour lysis syndrome [Recovered/Resolved]
